FAERS Safety Report 23133322 (Version 3)
Quarter: 2023Q4

REPORT INFORMATION
  Report Type: Spontaneous
  Country: DE (occurrence: DE)
  Receive Date: 20231101
  Receipt Date: 20231218
  Transmission Date: 20240110
  Serious: Yes (Other)
  Sender: FDA-Public Use
  Company Number: DE-MYLANLABS-2023M1113259

PATIENT
  Age: 11 Year
  Sex: Female

DRUGS (3)
  1. FLUTICASONE PROPIONATE\SALMETEROL XINAFOATE [Suspect]
     Active Substance: FLUTICASONE PROPIONATE\SALMETEROL XINAFOATE
     Indication: Acute respiratory distress syndrome
     Dosage: BID (1 SPRAY EACH: ONCE IN THE MORNING AND ONCE IN THE EVENING)
     Route: 055
     Dates: start: 20230906
  2. FLUTICASONE PROPIONATE\SALMETEROL XINAFOATE [Suspect]
     Active Substance: FLUTICASONE PROPIONATE\SALMETEROL XINAFOATE
     Indication: Asthma
  3. ALBUTEROL [Suspect]
     Active Substance: ALBUTEROL
     Indication: Product used for unknown indication
     Dosage: UNK
     Route: 065

REACTIONS (9)
  - Asthma [Recovered/Resolved]
  - Acute respiratory distress syndrome [Recovered/Resolved]
  - Panic attack [Recovered/Resolved]
  - Therapeutic product effect incomplete [Recovered/Resolved]
  - Treatment delayed [Recovered/Resolved]
  - Dyspnoea [Unknown]
  - Dermatitis allergic [Recovered/Resolved]
  - Wheezing [Unknown]
  - Product quality issue [Unknown]
